FAERS Safety Report 12851709 (Version 2)
Quarter: 2017Q1

REPORT INFORMATION
  Report Type: Report from Study
  Country: US (occurrence: US)
  Receive Date: 20161016
  Receipt Date: 20170115
  Transmission Date: 20170428
  Serious: Yes (Other)
  Sender: FDA-Public Use
  Company Number: US-ROCHE-1841396

PATIENT

DRUGS (3)
  1. BEVACIZUMAB [Suspect]
     Active Substance: BEVACIZUMAB
     Indication: NEOPLASM
     Dosage: 15 MG/KG ADDITION ON D1
     Route: 042
  2. PM01183 [Suspect]
     Active Substance: LURBINECTEDIN
     Indication: NEOPLASM
     Dosage: 2.2 MG/M ON DAY 1
     Route: 065
  3. PACLITAXEL. [Suspect]
     Active Substance: PACLITAXEL
     Indication: NEOPLASM
     Dosage: 80 MG/M D1+8 Q3W.
     Route: 065

REACTIONS (8)
  - Bone marrow failure [Unknown]
  - Anaemia [Unknown]
  - Fatigue [Unknown]
  - Colonic fistula [Unknown]
  - Neutropenia [Unknown]
  - Large intestine perforation [Unknown]
  - Febrile neutropenia [Unknown]
  - Sepsis [Unknown]
